FAERS Safety Report 12540760 (Version 1)
Quarter: 2016Q3

REPORT INFORMATION
  Report Type: Spontaneous
  Country: US (occurrence: US)
  Receive Date: 20160708
  Receipt Date: 20160708
  Transmission Date: 20161109
  Serious: No
  Sender: FDA-Public Use
  Company Number: US-BAYER-2016-132289

PATIENT
  Age: 84 Year
  Sex: Female
  Weight: 62.59 kg

DRUGS (2)
  1. SENNA PLUS [Concomitant]
     Active Substance: DOCUSATE SODIUM\SENNOSIDES\SENNOSIDES A AND B
  2. MIRALAX [Suspect]
     Active Substance: POLYETHYLENE GLYCOL 3350
     Indication: ANORECTAL CELLULITIS
     Dosage: UNK, QD
     Route: 048

REACTIONS (2)
  - Product use issue [None]
  - Off label use [None]
